FAERS Safety Report 5357852-0 (Version None)
Quarter: 2007Q2

REPORT INFORMATION
  Report Type: 
  Country: None (occurrence: None)
  Receive Date: 20070530
  Receipt Date: 20070214
  Transmission Date: 20071010
  Serious: Yes (Other)
  Sender: FDA-Public Use
  Company Number: US200701003069

PATIENT
  Age: 56 Year
  Sex: Female
  Weight: 81.6 kg

DRUGS (4)
  1. ZYPREXA [Suspect]
     Dosage: ORAL
     Route: 048
     Dates: start: 20040101, end: 20060401
  2. DIOVAN /SCH/ (VALSARTAN) [Concomitant]
  3. HYDROCHLOROTHIAZIDE [Concomitant]
  4. PAXIL [Concomitant]

REACTIONS (3)
  - DIABETES MELLITUS [None]
  - PANCREATITIS ACUTE [None]
  - VISUAL ACUITY REDUCED [None]
